APPROVED DRUG PRODUCT: DOXEPIN HYDROCHLORIDE
Active Ingredient: DOXEPIN HYDROCHLORIDE
Strength: EQ 10MG BASE
Dosage Form/Route: CAPSULE;ORAL
Application: A070952 | Product #001
Applicant: WATSON LABORATORIES INC
Approved: Mar 4, 1987 | RLD: No | RS: No | Type: DISCN